FAERS Safety Report 5580151-9 (Version None)
Quarter: 2007Q4

REPORT INFORMATION
  Report Type: 
  Country: None (occurrence: None)
  Receive Date: 20071227
  Receipt Date: 20071227
  Transmission Date: 20080405
  Serious: Yes (Other)
  Sender: FDA-Public Use
  Company Number: None

PATIENT
  Sex: Female
  Weight: 71.3 kg

DRUGS (4)
  1. CARBOPLATIN [Suspect]
     Indication: OVARIAN CANCER
     Dosage: 360 MG, IV Q 3 WEEKS
     Route: 042
     Dates: start: 20070911
  2. PACLITAXEL [Suspect]
     Indication: OVARIAN CANCER
     Dosage: 255 MG, IV Q 3 WEEKS
     Route: 042
     Dates: start: 20070911
  3. DASATINIB 50 MG. TABS (BRISTOL-MYERS SQUIBB) [Suspect]
     Indication: OVARIAN CANCER
     Dosage: 100 MG, P.O. DAILY
     Route: 048
     Dates: start: 20070911, end: 20070925
  4. ONDANSETRON [Concomitant]

REACTIONS (1)
  - NEUTROPENIA [None]
